FAERS Safety Report 25157485 (Version 1)
Quarter: 2025Q2

REPORT INFORMATION
  Report Type: Other
  Country: CN (occurrence: CN)
  Receive Date: 20250403
  Receipt Date: 20250403
  Transmission Date: 20250717
  Serious: Yes (Other)
  Sender: XCOVERY HOLDINGS
  Company Number: CN-XCO-202500009

PATIENT
  Age: 63 Year
  Weight: 75 kg

DRUGS (1)
  1. ENSARTINIB HYDROCHLORIDE [Suspect]
     Active Substance: ENSARTINIB HYDROCHLORIDE
     Indication: Lung neoplasm malignant
     Route: 048
     Dates: start: 20250216, end: 20250216

REACTIONS (3)
  - Temperature intolerance [Recovered/Resolved]
  - Rash [Recovered/Resolved]
  - Erythema [Recovered/Resolved]
